FAERS Safety Report 12506369 (Version 3)
Quarter: 2016Q3

REPORT INFORMATION
  Report Type: Report from Study
  Country: RO (occurrence: RO)
  Receive Date: 20160628
  Receipt Date: 20160906
  Transmission Date: 20161109
  Serious: Yes (Death, Hospitalization)
  Sender: FDA-Public Use
  Company Number: RO-ABBVIE-16P-135-1555854-00

PATIENT
  Age: 60 Year
  Sex: Male

DRUGS (10)
  1. EXVIERA [Suspect]
     Active Substance: DASABUVIR
     Indication: HEPATITIS C
  2. REBETOL [Suspect]
     Active Substance: RIBAVIRIN
     Indication: HEPATIC CIRRHOSIS
     Route: 048
     Dates: end: 20160403
  3. BETALOK ZOK [Concomitant]
     Indication: HYPERTENSION
     Route: 048
     Dates: start: 2010
  4. NOVORAPID INSULIN [Concomitant]
     Indication: TYPE 2 DIABETES MELLITUS
     Dosage: 10 IU AT 13.00, NOON
     Route: 058
     Dates: start: 201501
  5. VIEKIRAX [Suspect]
     Active Substance: OMBITASVIR\PARITAPREVIR\RITONAVIR
     Indication: HEPATIC CIRRHOSIS
  6. EXVIERA [Suspect]
     Active Substance: DASABUVIR
     Indication: HEPATIC CIRRHOSIS
     Dosage: 2*1 TABL/DAY
     Route: 048
     Dates: start: 20160111, end: 20160403
  7. ATACAND [Concomitant]
     Active Substance: CANDESARTAN CILEXETIL
     Indication: HYPERTENSION
     Route: 048
     Dates: start: 2015
  8. LEVEMIR [Concomitant]
     Active Substance: INSULIN DETEMIR
     Indication: TYPE 2 DIABETES MELLITUS
     Dosage: 10 IU AT 18.30, EVENING
     Route: 058
     Dates: start: 201501
  9. VIEKIRAX [Suspect]
     Active Substance: OMBITASVIR\PARITAPREVIR\RITONAVIR
     Indication: HEPATITIS C
     Dosage: 2 TABL/DAY IN THE MORNING
     Route: 048
     Dates: start: 20160111, end: 20160403
  10. REBETOL [Suspect]
     Active Substance: RIBAVIRIN
     Indication: HEPATITIS C
     Route: 048
     Dates: start: 20160111

REACTIONS (4)
  - Haemorrhagic stroke [Fatal]
  - Cardio-respiratory arrest [Fatal]
  - Hepatic failure [Fatal]
  - Anaemia [Recovering/Resolving]

NARRATIVE: CASE EVENT DATE: 20160205
